FAERS Safety Report 4337529-0 (Version None)
Quarter: 2004Q2

REPORT INFORMATION
  Report Type: 
  Country: None (occurrence: None)
  Receive Date: 20040413
  Receipt Date: 20031103
  Transmission Date: 20050107
  Serious: Yes (Other)
  Sender: FDA-Public Use
  Company Number: FR-GLAXOSMITHKLINE-B0313585A

PATIENT
  Age: 39 Year
  Sex: Male
  Weight: 68 kg

DRUGS (4)
  1. LAMICTAL [Suspect]
     Indication: EPILEPSY
     Dosage: 300MG PER DAY
     Route: 048
     Dates: start: 19990101
  2. NEURONTIN [Suspect]
     Indication: EPILEPSY
     Dosage: 800MG TWICE PER DAY
     Route: 048
     Dates: start: 19970101
  3. SECTRAL [Concomitant]
     Route: 048
  4. MOGADON [Concomitant]
     Route: 048

REACTIONS (3)
  - OPTIC NEUROPATHY [None]
  - VISUAL ACUITY REDUCED [None]
  - VISUAL FIELD DEFECT [None]
